FAERS Safety Report 22932092 (Version 2)
Quarter: 2023Q4

REPORT INFORMATION
  Report Type: Spontaneous
  Country: ES (occurrence: ES)
  Receive Date: 20230912
  Receipt Date: 20231011
  Transmission Date: 20240109
  Serious: Yes (Hospitalization, Other)
  Sender: FDA-Public Use
  Company Number: ES-HETERO-AMR2023ES02447

PATIENT
  Age: 53 Year
  Sex: Male

DRUGS (1)
  1. ESCITALOPRAM [Suspect]
     Active Substance: ESCITALOPRAM OXALATE
     Indication: Depression
     Route: 048
     Dates: start: 2018

REACTIONS (3)
  - Drug withdrawal syndrome [Recovered/Resolved]
  - Transient global amnesia [Recovered/Resolved]
  - Circumstance or information capable of leading to medication error [Unknown]
